FAERS Safety Report 25193444 (Version 1)
Quarter: 2025Q2

REPORT INFORMATION
  Report Type: Report from Study
  Country: US (occurrence: US)
  Receive Date: 20250414
  Receipt Date: 20250414
  Transmission Date: 20250717
  Serious: Yes (Other)
  Sender: ALEXION PHARMACEUTICALS
  Company Number: US-ASTRAZENECA-202504USA008664US

PATIENT
  Age: 21 Year

DRUGS (1)
  1. STRENSIQ [Suspect]
     Active Substance: ASFOTASE ALFA
     Indication: Phosphorus metabolism disorder
     Dosage: 80 MILLIGRAM, SIX TIMES/WEEK
     Route: 065

REACTIONS (6)
  - Neuropathy peripheral [Unknown]
  - Injection site hypertrophy [Unknown]
  - Migraine [Unknown]
  - Anion gap increased [Unknown]
  - Blood calcium abnormal [Unknown]
  - Vitamin B6 abnormal [Unknown]
